FAERS Safety Report 4502707-4 (Version None)
Quarter: 2004Q4

REPORT INFORMATION
  Report Type: 
  Country: None (occurrence: None)
  Receive Date: 20041109
  Receipt Date: 20041022
  Transmission Date: 20050328
  Serious: No
  Sender: FDA-Public Use
  Company Number: 9164

PATIENT
  Age: 47 Year
  Sex: Male

DRUGS (3)
  1. CYTARABINE [Suspect]
     Indication: ACUTE MYELOID LEUKAEMIA
  2. FLUDARABINE [Concomitant]
  3. IDARUBICIN [Concomitant]

REACTIONS (3)
  - DIZZINESS [None]
  - NYSTAGMUS [None]
  - PERIPHERAL SENSORY NEUROPATHY [None]
